FAERS Safety Report 7525544-5 (Version None)
Quarter: 2011Q2

REPORT INFORMATION
  Report Type: 
  Country: None (occurrence: None)
  Receive Date: 20110606
  Receipt Date: 20110527
  Transmission Date: 20111010
  Serious: Yes (Hospitalization)
  Sender: FDA-Public Use
  Company Number: CA-ABBOTT-10P-028-0691383-00

PATIENT
  Sex: Female
  Weight: 53.572 kg

DRUGS (28)
  1. FOLIC ACID [Concomitant]
     Indication: RHEUMATOID ARTHRITIS
     Route: 048
     Dates: start: 19850101
  2. REACTINE [Concomitant]
     Indication: HYPERSENSITIVITY
     Route: 048
     Dates: start: 20100801
  3. MOTRIN [Concomitant]
     Route: 048
     Dates: start: 19870101
  4. LANOXIN [Concomitant]
     Indication: PRODUCT USED FOR UNKNOWN INDICATION
     Route: 048
     Dates: start: 20000101
  5. PROMETRIUM [Concomitant]
     Indication: HORMONE REPLACEMENT THERAPY
     Route: 048
     Dates: start: 19850101
  6. LANOXIN [Concomitant]
     Route: 048
     Dates: start: 20050101
  7. PROPAFENONE HCL [Concomitant]
     Indication: PALPITATIONS
     Route: 048
     Dates: start: 20000101
  8. ELAVIL [Concomitant]
     Indication: ARTHRITIS
     Route: 048
     Dates: start: 19950101
  9. FOLIC ACID [Concomitant]
     Dates: start: 19910101
  10. OGEN [Concomitant]
     Indication: HORMONE REPLACEMENT THERAPY
     Dates: start: 19850101
  11. MOTRIN [Concomitant]
     Indication: RHEUMATOID ARTHRITIS
     Dosage: 2 - 3 TIMES A DAY AS NEEDED
     Route: 048
     Dates: start: 19850101
  12. PLAQUENIL [Concomitant]
     Route: 048
     Dates: start: 19910101
  13. METHOTREXATE [Concomitant]
     Indication: RHEUMATOID ARTHRITIS
     Route: 048
     Dates: start: 19950101
  14. PROMETRIUM [Concomitant]
     Indication: MENOPAUSE
     Dosage: UNKNOWN
     Dates: start: 19850101
  15. TYLENOL (CAPLET) [Concomitant]
     Indication: RHEUMATOID ARTHRITIS
     Route: 048
     Dates: start: 20010101
  16. OGEN [Concomitant]
     Indication: MENOPAUSE
  17. RYTHMOL [Concomitant]
     Indication: ARRHYTHMIA
     Route: 048
     Dates: start: 20050101
  18. PREDNISONE [Concomitant]
     Indication: RHEUMATOID ARTHRITIS
     Route: 048
     Dates: start: 19850101
  19. PREDNISONE [Concomitant]
     Dates: start: 19910101
  20. PLAQUENIL [Concomitant]
     Indication: RHEUMATOID ARTHRITIS
     Route: 048
     Dates: start: 19850101
  21. METHOTREXATE [Concomitant]
     Route: 048
     Dates: start: 19910101
  22. LYRICA [Concomitant]
     Indication: SPINAL COLUMN STENOSIS
     Route: 048
     Dates: start: 19850101
  23. TYLENOL-500 [Concomitant]
     Indication: PAIN
     Route: 048
     Dates: start: 20000101
  24. HUMIRA [Suspect]
     Indication: RHEUMATOID ARTHRITIS
     Route: 058
     Dates: start: 20100618, end: 20101101
  25. ESTRACE [Concomitant]
     Indication: HORMONE REPLACEMENT THERAPY
     Dosage: 0.5MG X 1.5 PER DAY
     Route: 048
     Dates: start: 19850101
  26. LYRICA [Concomitant]
     Indication: RHEUMATOID ARTHRITIS
     Dates: start: 20010101
  27. NEXIUM [Concomitant]
     Indication: GASTROOESOPHAGEAL REFLUX DISEASE
     Route: 048
     Dates: start: 19950101
  28. NEXIUM [Concomitant]
     Dosage: UNKNOWN
     Route: 048
     Dates: start: 20060101

REACTIONS (7)
  - LIMB INJURY [None]
  - WOUND DEHISCENCE [None]
  - PERIPHERAL ARTERIAL OCCLUSIVE DISEASE [None]
  - ERYTHEMA [None]
  - CELLULITIS [None]
  - WOUND INFECTION [None]
  - PAIN IN EXTREMITY [None]
